FAERS Safety Report 16622416 (Version 2)
Quarter: 2019Q3

REPORT INFORMATION
  Report Type: Other
  Country: GB (occurrence: GB)
  Receive Date: 20190724
  Receipt Date: 20190726
  Transmission Date: 20191004
  Serious: Yes (Death, Other)
  Sender: FDA-Public Use
  Company Number: GB-CELLTRION INC.-2019GB022769

PATIENT

DRUGS (47)
  1. TAZOCIN [Concomitant]
     Active Substance: PIPERACILLIN SODIUM\TAZOBACTAM SODIUM
     Dosage: 18 G, QD
     Route: 042
     Dates: start: 20151005, end: 20151008
  2. DOMPERIDONE [Concomitant]
     Active Substance: DOMPERIDONE
     Dosage: TID FOR 3 DAYS AFTER DAY 1 AND 8 OF CHEM
     Route: 048
     Dates: start: 20190216
  3. DEXAMETHASONE. [Concomitant]
     Active Substance: DEXAMETHASONE
     Dosage: 8 MG
     Route: 048
     Dates: start: 20170302, end: 20170303
  4. FLUCLOXACILLIN [Concomitant]
     Active Substance: FLUCLOXACILLIN
     Indication: PNEUMONIA
     Dosage: UNK
  5. NERATINIB [Suspect]
     Active Substance: NERATINIB
     Indication: HER-2 POSITIVE BREAST CANCER
     Dosage: 240 MG, QD
     Route: 048
     Dates: start: 20181101, end: 20190109
  6. METRONIDAZOLE. [Concomitant]
     Active Substance: METRONIDAZOLE
     Dosage: 1200 MG, QD
     Route: 048
     Dates: start: 20151005
  7. FILGRASTIM [Concomitant]
     Active Substance: FILGRASTIM
     Dosage: 300 MICROGRAM, QD
     Route: 058
     Dates: start: 20151025, end: 20151031
  8. TRIMETHOPRIM. [Concomitant]
     Active Substance: TRIMETHOPRIM
     Dosage: 400 MG, QD
     Route: 048
     Dates: start: 20151014, end: 20151202
  9. VITAMIN C [Concomitant]
     Active Substance: ASCORBIC ACID
     Dosage: 1 DF, QD
     Route: 048
     Dates: start: 20171213
  10. CO-AMOXICLAV [AMOXICILLIN;CLAVULANATE POTASSIUM] [Concomitant]
     Active Substance: AMOXICILLIN\CLAVULANATE POTASSIUM
     Dosage: 3 DF
     Route: 048
     Dates: start: 20190513, end: 20190520
  11. LORAZEPAM. [Concomitant]
     Active Substance: LORAZEPAM
     Indication: ANXIETY
     Dosage: 1 MG
     Route: 048
     Dates: start: 20190611, end: 20190703
  12. ONDANSETRON [Concomitant]
     Active Substance: ONDANSETRON
     Dosage: 8 MILLIGRAM
     Route: 048
     Dates: start: 20190522, end: 20190610
  13. ZOPICLONE [Concomitant]
     Active Substance: ZOPICLONE
     Indication: INSOMNIA
     Dosage: 3.75 MG
     Route: 048
     Dates: start: 20190521, end: 20190603
  14. VINORELBINE [Suspect]
     Active Substance: VINORELBINE TARTRATE
     Indication: HER-2 POSITIVE BREAST CANCER
     Dosage: 110 MG
     Route: 048
     Dates: start: 20190522
  15. LOPERAMIDE [Concomitant]
     Active Substance: LOPERAMIDE
     Dosage: 2 MG
     Route: 048
     Dates: start: 20181101
  16. FLUCLOXACILLIN [Concomitant]
     Active Substance: FLUCLOXACILLIN
     Indication: PSEUDOMONAS INFECTION
     Dosage: UNK
     Route: 065
     Dates: start: 20190627, end: 20190703
  17. GLYCEROL [Concomitant]
     Active Substance: GLYCERIN
     Indication: CONSTIPATION
     Dosage: 4 G
     Route: 065
     Dates: start: 20190513, end: 20190629
  18. TRASTUZUMAB (UNKNOWN) [Suspect]
     Active Substance: TRASTUZUMAB
     Dosage: 400 MG EVERY 3 WEEKS
     Route: 042
     Dates: start: 20150814, end: 20180511
  19. COD LIVER OIL [Concomitant]
     Active Substance: COD LIVER OIL
     Dosage: UNK
     Route: 048
     Dates: start: 20171213
  20. FILGRASTIM [Concomitant]
     Active Substance: FILGRASTIM
     Dosage: 300 MICROGRAM, QD
     Route: 058
     Dates: start: 20151005, end: 20151008
  21. E45 [Concomitant]
     Active Substance: LANOLIN\LIGHT MINERAL OIL\PARAFFIN
     Dosage: 30 G
     Route: 061
     Dates: start: 20151116
  22. DOCETAXEL. [Suspect]
     Active Substance: DOCETAXEL
     Dosage: 108 MG EVERY 3 WEEKS
     Route: 042
     Dates: start: 20150722, end: 20150722
  23. DOCETAXEL. [Suspect]
     Active Substance: DOCETAXEL
     Dosage: 86 MG PER 3 WEEKS
     Route: 042
     Dates: start: 20150814, end: 20150904
  24. ERIBULIN [Suspect]
     Active Substance: ERIBULIN
     Indication: HER-2 POSITIVE BREAST CANCER
     Dosage: 2.5 MG PER 3 WEEKS
     Route: 042
     Dates: start: 20190222, end: 20190412
  25. ZOLEDRONIC ACID [Concomitant]
     Active Substance: ZOLEDRONIC ACID
     Dosage: 4 MG PER 1 MONTH
     Route: 042
     Dates: start: 20151030
  26. FILGRASTIM [Concomitant]
     Active Substance: FILGRASTIM
     Dosage: 300 MICROGRAM, QD
     Route: 058
     Dates: start: 20151120, end: 20151126
  27. DOCETAXEL. [Suspect]
     Active Substance: DOCETAXEL
     Indication: HER-2 POSITIVE BREAST CANCER
     Dosage: 108 MG EVERY 3 WEEKS
     Route: 042
     Dates: start: 20150925, end: 20151127
  28. PERTUZUMAB. [Suspect]
     Active Substance: PERTUZUMAB
     Dosage: MAINTAINANCE DOSE
     Route: 042
     Dates: start: 20150814, end: 20180511
  29. TRASTUZUMAB EMTANSINE [Suspect]
     Active Substance: ADO-TRASTUZUMAB EMTANSINE
     Indication: HER-2 POSITIVE BREAST CANCER
     Dosage: 240 MG PER 3 WEEKS
     Route: 042
     Dates: start: 20180625, end: 20180928
  30. PARACETAMOL [Concomitant]
     Active Substance: ACETAMINOPHEN
     Dosage: 4 G, QD
     Route: 048
     Dates: start: 20151006, end: 20151008
  31. VERAPAMIL [Concomitant]
     Active Substance: VERAPAMIL HYDROCHLORIDE
     Indication: VENTRICULAR EXTRASYSTOLES
     Dosage: UNK
     Route: 048
     Dates: start: 20160906
  32. DEXAMETHASONE. [Concomitant]
     Active Substance: DEXAMETHASONE
     Dosage: 12 UNK
     Route: 048
     Dates: start: 20190301, end: 20190301
  33. BUDESONIDE. [Concomitant]
     Active Substance: BUDESONIDE
     Dosage: 9 MG
     Route: 048
     Dates: start: 20181101, end: 20181129
  34. NYSTATIN. [Concomitant]
     Active Substance: NYSTATIN
     Indication: ORAL CANDIDIASIS
     Dosage: UNK
     Route: 048
     Dates: start: 20190614, end: 20190629
  35. TRASTUZUMAB (UNKNOWN) [Suspect]
     Active Substance: TRASTUZUMAB
     Indication: HER-2 POSITIVE BREAST CANCER
     Dosage: 525 MG 1 TOTAL, LOADING DOSE 8 MG/KG
     Route: 042
     Dates: start: 20150721, end: 20150721
  36. PERTUZUMAB. [Suspect]
     Active Substance: PERTUZUMAB
     Indication: HER-2 POSITIVE BREAST CANCER
     Dosage: 840 MG, 1 TOTAL, LOADING DOSE
     Route: 042
     Dates: start: 20150721, end: 20150721
  37. CALCICHEW D3 FORTE [Concomitant]
     Active Substance: CALCIUM\CHOLECALCIFEROL
     Dosage: 2 DF, QD
     Route: 048
     Dates: start: 20150720
  38. GLUCOSAMINE [Concomitant]
     Active Substance: GLUCOSAMINE
     Dosage: 1 UNK, QD
     Route: 048
     Dates: start: 20171213
  39. PROCHLORPERAZINE. [Concomitant]
     Active Substance: PROCHLORPERAZINE
     Dosage: 15 MG, QD
     Route: 048
     Dates: start: 20160106, end: 20160113
  40. METRONIDAZOLE. [Concomitant]
     Active Substance: METRONIDAZOLE
     Dosage: 2.25 % PER DAY
     Route: 061
     Dates: start: 20190508, end: 20190529
  41. AMITRIPTYLINE HYDROCHLORIDE. [Concomitant]
     Active Substance: AMITRIPTYLINE HYDROCHLORIDE
     Dosage: 10 MG
     Route: 048
     Dates: start: 20190213
  42. DEXAMETHASONE. [Concomitant]
     Active Substance: DEXAMETHASONE
     Dosage: 4 MG
     Route: 048
     Dates: start: 20170303, end: 20170303
  43. CAPECITABINE. [Suspect]
     Active Substance: CAPECITABINE
     Indication: HER-2 POSITIVE BREAST CANCER
     Dosage: 500 MG
     Route: 048
     Dates: start: 20181031, end: 20190130
  44. TRASTUZUMAB, HYALURONIDASE (HUMAN RECOMBINANT) [Suspect]
     Active Substance: HYALURONIDASE (HUMAN RECOMBINANT)\TRASTUZUMAB
     Indication: HER-2 POSITIVE BREAST CANCER
     Dosage: 600 MG
     Route: 058
     Dates: start: 20190522
  45. GENTAMICIN. [Concomitant]
     Active Substance: GENTAMICIN
     Indication: PNEUMONIA
     Dosage: 345 MG, QD
     Route: 042
     Dates: start: 20151005, end: 20151008
  46. BISOPROLOL [Concomitant]
     Active Substance: BISOPROLOL
     Dosage: 1.25 MG, QD
     Route: 048
     Dates: start: 20160826, end: 20160906
  47. CYCLIZINE HYDROCHLORIDE [Concomitant]
     Active Substance: CYCLIZINE HYDROCHLORIDE
     Indication: NAUSEA
     Dosage: 150 MG PER DAY
     Route: 048
     Dates: start: 20181121, end: 20190703

REACTIONS (8)
  - Breast pain [Fatal]
  - Pneumonia [Fatal]
  - Pseudomonas infection [Fatal]
  - Cough [Fatal]
  - Breast pain [Fatal]
  - Musculoskeletal chest pain [Fatal]
  - Ureteric obstruction [Fatal]
  - Pleural effusion [Fatal]

NARRATIVE: CASE EVENT DATE: 20160316
